FAERS Safety Report 25037673 (Version 3)
Quarter: 2025Q3

REPORT INFORMATION
  Report Type: Report from Study
  Country: US (occurrence: US)
  Receive Date: 20250304
  Receipt Date: 20250726
  Transmission Date: 20251020
  Serious: No
  Sender: SANDOZ
  Company Number: US-SANDOZ-SDZ2025US013404

PATIENT
  Age: 13 Year
  Sex: Male
  Weight: 32 kg

DRUGS (4)
  1. OMNITROPE [Suspect]
     Active Substance: SOMATROPIN
     Route: 065
  2. OMNITROPE [Suspect]
     Active Substance: SOMATROPIN
     Route: 065
  3. OMNITROPE [Suspect]
     Active Substance: SOMATROPIN
     Indication: Hypopituitarism
     Dosage: 1.3 MG, QD (1.3 MG 2 DOSE EVERY N/A N/A) (10 MG / 1.5 ML)
     Route: 058
     Dates: start: 20240308
  4. OMNITROPE [Suspect]
     Active Substance: SOMATROPIN
     Indication: Hypopituitarism
     Dosage: 1.3 MG, QD (1.3 MG 2 DOSE EVERY N/A N/A) (10 MG / 1.5 ML)
     Route: 058
     Dates: start: 20240308

REACTIONS (3)
  - Vitamin D decreased [Not Recovered/Not Resolved]
  - Incorrect dose administered by device [Unknown]
  - Device malfunction [Unknown]

NARRATIVE: CASE EVENT DATE: 20250101
